FAERS Safety Report 9482301 (Version 2)
Quarter: 2014Q1

REPORT INFORMATION
  Report Type: Spontaneous
  Country: DK (occurrence: DK)
  Receive Date: 20130828
  Receipt Date: 20140310
  Transmission Date: 20141002
  Serious: Yes (Hospitalization)
  Sender: FDA-Public Use
  Company Number: DK-JNJFOC-20130810325

PATIENT
  Age: 24 Year
  Sex: Female
  Weight: 63 kg

DRUGS (1)
  1. CILEST [Suspect]
     Indication: CONTRACEPTION
     Dosage: 250 + 35 MICROGRAM
     Route: 048
     Dates: start: 2003, end: 201304

REACTIONS (3)
  - Pregnancy on oral contraceptive [Recovered/Resolved]
  - Exposure during pregnancy [Recovered/Resolved]
  - Abortion induced [Recovered/Resolved]
